FAERS Safety Report 7939344-5 (Version None)
Quarter: 2011Q4

REPORT INFORMATION
  Report Type: 
  Country: None (occurrence: None)
  Receive Date: 20111125
  Receipt Date: 20111123
  Transmission Date: 20120403
  Serious: Yes (Hospitalization)
  Sender: FDA-Public Use
  Company Number: IT-SHIRE-SPV1-2011-01436

PATIENT
  Sex: Male

DRUGS (1)
  1. ANAGRELIDE HYDROCHLORIDE [Suspect]
     Indication: PRODUCT USED FOR UNKNOWN INDICATION
     Dosage: 3 DF, 1X/DAY:QD
     Route: 065
     Dates: start: 20110101

REACTIONS (1)
  - CARDIAC TAMPONADE [None]
